FAERS Safety Report 8380977-2 (Version None)
Quarter: 2012Q2

REPORT INFORMATION
  Report Type: 
  Country: None (occurrence: None)
  Receive Date: 20120523
  Receipt Date: 20120516
  Transmission Date: 20120825
  Serious: Yes (Hospitalization)
  Sender: FDA-Public Use
  Company Number: JP-EISAI INC-E7389-02469-SPO-JP

PATIENT
  Age: 25 Year
  Sex: Female
  Weight: 58 kg

DRUGS (7)
  1. DECADRON [Suspect]
     Indication: ANTIEMETIC SUPPORTIVE CARE
     Route: 048
     Dates: start: 20120412, end: 20120414
  2. GRAN [Concomitant]
     Indication: NEUTROPENIA
     Route: 042
     Dates: start: 20120426, end: 20120426
  3. DEXAMETHASONE SODIUM PHOSPHATE [Suspect]
     Indication: ANTIEMETIC SUPPORTIVE CARE
     Route: 042
     Dates: start: 20120412, end: 20120502
  4. HALAVEN [Suspect]
     Indication: BREAST CANCER RECURRENT
     Route: 041
     Dates: start: 20120412, end: 20120502
  5. ONDANSETRON [Concomitant]
     Indication: ANTIEMETIC SUPPORTIVE CARE
     Route: 042
     Dates: start: 20120412, end: 20120502
  6. STRONGER NEO-MINOPHAGEN C [Concomitant]
     Route: 042
     Dates: start: 20120412, end: 20120502
  7. URSO 250 [Concomitant]
     Route: 048
     Dates: start: 20120320

REACTIONS (1)
  - PANCREATITIS [None]
